FAERS Safety Report 17803319 (Version 4)
Quarter: 2020Q2

REPORT INFORMATION
  Report Type: Spontaneous
  Country: JP (occurrence: JP)
  Receive Date: 20200519
  Receipt Date: 20200615
  Transmission Date: 20200714
  Serious: Yes (Death, Other)
  Sender: FDA-Public Use
  Company Number: JP-PFIZER INC-2020196988

PATIENT
  Age: 92 Year
  Sex: Male

DRUGS (4)
  1. AMLODIPINE [Concomitant]
     Active Substance: AMLODIPINE BESYLATE
  2. XELJANZ [Suspect]
     Active Substance: TOFACITINIB CITRATE
     Dosage: 10 MG, 2X/DAY
     Dates: start: 20200227
  3. TENELIA [Concomitant]
     Active Substance: TENELIGLIPTIN
  4. METGLUCO [Concomitant]
     Active Substance: METFORMIN HYDROCHLORIDE

REACTIONS (2)
  - Cardiac failure [Fatal]
  - Myocardial infarction [Fatal]

NARRATIVE: CASE EVENT DATE: 202003
